FAERS Safety Report 24956559 (Version 1)
Quarter: 2025Q1

REPORT INFORMATION
  Report Type: Other
  Country: IN (occurrence: IN)
  Receive Date: 20250211
  Receipt Date: 20250211
  Transmission Date: 20250409
  Serious: Yes (Other)
  Sender: OWLPHARMA CONSULTING
  Company Number: IN-Owlpharma Consulting, Lda.-2170946

PATIENT

DRUGS (1)
  1. MAGNESIUM SULFATE [Suspect]
     Active Substance: MAGNESIUM SULFATE
     Indication: Pre-eclampsia

REACTIONS (1)
  - Bradycardia foetal [Unknown]
